FAERS Safety Report 9527629 (Version 1)
Quarter: 2013Q3

REPORT INFORMATION
  Report Type: Spontaneous
  Country: US (occurrence: None)
  Receive Date: 20130913
  Receipt Date: 20130913
  Transmission Date: 20140515
  Serious: Yes (Other)
  Sender: FDA-Public Use
  Company Number: None

PATIENT
  Age: 60 Year
  Sex: Male
  Weight: 79.38 kg

DRUGS (5)
  1. ATORVASTATIN [Suspect]
     Indication: LOW DENSITY LIPOPROTEIN INCREASED
     Dosage: 1/DAY ONCE DAILY TAKEN BY MOUTH
     Route: 048
     Dates: start: 20130626, end: 20130826
  2. LISINOPRIL/HCTZ [Concomitant]
  3. XANAX [Concomitant]
  4. PRILOSEC [Concomitant]
  5. MULTI-VITAMIN [Concomitant]

REACTIONS (9)
  - Paraesthesia oral [None]
  - Paraesthesia [None]
  - Back pain [None]
  - Paraesthesia [None]
  - Pain in extremity [None]
  - Pain in extremity [None]
  - Pain in extremity [None]
  - Glossodynia [None]
  - Burning sensation [None]
